FAERS Safety Report 5953425-7 (Version None)
Quarter: 2008Q4

REPORT INFORMATION
  Report Type: 
  Country: None (occurrence: None)
  Receive Date: 20081114
  Receipt Date: 20081103
  Transmission Date: 20090506
  Serious: Yes (Disabling, Other)
  Sender: FDA-Public Use
  Company Number: US-MERCK-0606USA00340

PATIENT
  Age: 58 Year
  Sex: Female
  Weight: 73 kg

DRUGS (8)
  1. FOSAMAX [Suspect]
     Indication: OSTEOPENIA
     Route: 048
     Dates: start: 19940101, end: 20000101
  2. FOSAMAX [Suspect]
     Route: 048
     Dates: start: 20010701, end: 20060301
  3. FOSAMAX [Suspect]
     Route: 048
  4. FOSAMAX [Suspect]
     Route: 048
  5. ZOCOR [Concomitant]
     Indication: BLOOD CHOLESTEROL INCREASED
     Route: 048
     Dates: start: 20060101
  6. LIPITOR [Concomitant]
     Route: 065
     Dates: start: 20030101, end: 20060101
  7. VITAMIN D (UNSPECIFIED) AND CALCIUM (UNSPECIFIED) [Concomitant]
     Route: 065
  8. FOSAMAX PLUS D [Concomitant]
     Route: 048
     Dates: start: 20051201

REACTIONS (18)
  - BLOOD PRESSURE INCREASED [None]
  - CATARACT OPERATION [None]
  - CEREBRAL ISCHAEMIA [None]
  - DIZZINESS [None]
  - DRY SKIN [None]
  - DYSPNOEA [None]
  - MENISCUS LESION [None]
  - NAUSEA [None]
  - NECK PAIN [None]
  - OSTEOARTHRITIS [None]
  - OSTEOMYELITIS [None]
  - OSTEONECROSIS [None]
  - PAIN IN EXTREMITY [None]
  - RETCHING [None]
  - ROAD TRAFFIC ACCIDENT [None]
  - SINUSITIS [None]
  - TRIGEMINAL NEURALGIA [None]
  - VENOUS ANGIOMA OF BRAIN [None]
